FAERS Safety Report 16667248 (Version 2)
Quarter: 2019Q3

REPORT INFORMATION
  Report Type: Spontaneous
  Country: RO (occurrence: RO)
  Receive Date: 20190805
  Receipt Date: 20190913
  Transmission Date: 20191004
  Serious: Yes (Other)
  Sender: FDA-Public Use
  Company Number: RO-ACCORD-150236

PATIENT
  Age: 32 Year
  Sex: Male

DRUGS (10)
  1. CISPLATIN. [Suspect]
     Active Substance: CISPLATIN
     Indication: HODGKIN^S DISEASE
     Dosage: ONE COURSE
     Route: 065
     Dates: start: 2017, end: 2017
  2. DEXAMETHASONE. [Suspect]
     Active Substance: DEXAMETHASONE
     Indication: HODGKIN^S DISEASE
     Dosage: ONE COURSE
     Route: 065
     Dates: start: 201701, end: 201702
  3. DEXAMETHASONE. [Suspect]
     Active Substance: DEXAMETHASONE
     Indication: HODGKIN^S DISEASE NODULAR SCLEROSIS
     Dosage: UNK, CYCLIC (ONE COURSE)
     Route: 065
     Dates: start: 201701, end: 201702
  4. GEMCITABINE/GEMCITABINE HYDROCHLORIDE [Suspect]
     Active Substance: GEMCITABINE\GEMCITABINE HYDROCHLORIDE
     Indication: HODGKIN^S DISEASE NODULAR SCLEROSIS
     Dosage: UNK, CYCLIC (SIX COURSES)
     Dates: start: 201801, end: 201804
  5. CYTARABINE. [Suspect]
     Active Substance: CYTARABINE
     Indication: HODGKIN^S DISEASE NODULAR SCLEROSIS
     Dosage: UNK, CYCLIC (ONE COURSE)
     Dates: start: 201701, end: 201702
  6. DOXORUBICIN [Suspect]
     Active Substance: DOXORUBICIN
     Indication: HODGKIN^S DISEASE
     Dosage: SIX COURSES
     Route: 065
     Dates: start: 201801, end: 201804
  7. GEMCITABINE/GEMCITABINE HYDROCHLORIDE [Suspect]
     Active Substance: GEMCITABINE\GEMCITABINE HYDROCHLORIDE
     Indication: HODGKIN^S DISEASE
     Dosage: SIX COURSES
     Route: 065
     Dates: start: 201801, end: 201804
  8. VINORELBINE [Suspect]
     Active Substance: VINORELBINE TARTRATE
     Indication: HODGKIN^S DISEASE
     Dosage: SIX COURSES
     Route: 065
     Dates: start: 201801, end: 201804
  9. CISPLATIN. [Suspect]
     Active Substance: CISPLATIN
     Indication: HODGKIN^S DISEASE NODULAR SCLEROSIS
     Dosage: UNK, CYCLIC (ONE COURSE)
     Route: 065
     Dates: start: 201701, end: 201702
  10. CYTARABINE. [Suspect]
     Active Substance: CYTARABINE
     Indication: HODGKIN^S DISEASE
     Dosage: ONE COURSE
     Route: 065
     Dates: start: 201701, end: 201702

REACTIONS (4)
  - Pancytopenia [Unknown]
  - Infection [Unknown]
  - Therapy non-responder [Unknown]
  - Off label use [Unknown]

NARRATIVE: CASE EVENT DATE: 2017
